FAERS Safety Report 4306202-7 (Version None)
Quarter: 2004Q1

REPORT INFORMATION
  Report Type: 
  Country: None (occurrence: None)
  Receive Date: 20040225
  Receipt Date: 20030314
  Transmission Date: 20041129
  Serious: No
  Sender: FDA-Public Use
  Company Number: US-BRISTOL-MYERS SQUIBB COMPANY-12223616

PATIENT
  Age: 23 Year
  Sex: Male
  Weight: 84 kg

DRUGS (2)
  1. EXCEDRIN ES TABS [Suspect]
     Indication: PAIN
     Route: 048
     Dates: start: 20030314
  2. FOLIC ACID [Concomitant]

REACTIONS (2)
  - DISORIENTATION [None]
  - PAIN [None]
